FAERS Safety Report 7275482-0 (Version None)
Quarter: 2011Q1

REPORT INFORMATION
  Report Type: 
  Country: None (occurrence: None)
  Receive Date: 20110126
  Receipt Date: 20110118
  Transmission Date: 20110831
  Serious: Yes (Life-Threatening)
  Sender: FDA-Public Use
  Company Number: WAES 1010USA00594

PATIENT
  Age: 64 Year
  Sex: Female

DRUGS (7)
  1. AVANDAMET [Suspect]
  2. TRIAMTERENE/HYDROCHLOROTHIAZIDE [Suspect]
     Dosage: 25 MG/DAILY
  3. ZOCOR [Suspect]
     Dosage: 20 MG/DAILY
     Route: 048
  4. CALCIUM CARBONATE (+) CHOLECALCIFEROL [Concomitant]
  5. FOSAMAX [Suspect]
     Dosage: 70 MG/QKY
     Route: 048
  6. LISINOPRIL [Suspect]
     Dosage: 10 MG/DAILY
     Route: 048
  7. METOPROLOL [Suspect]
     Dosage: 25 MG/BID

REACTIONS (1)
  - PULMONARY EMBOLISM [None]
